FAERS Safety Report 9459430 (Version 4)
Quarter: 2014Q4

REPORT INFORMATION
  Report Type: Report from Study
  Country: CA (occurrence: CA)
  Receive Date: 20130815
  Receipt Date: 20141121
  Transmission Date: 20150529
  Serious: Yes (Other)
  Sender: FDA-Public Use
  Company Number: CA-ROCHE-1260269

PATIENT
  Age: 50 Year
  Sex: Female
  Weight: 86 kg

DRUGS (9)
  1. ACTEMRA [Suspect]
     Active Substance: TOCILIZUMAB
     Route: 042
     Dates: start: 20130527
  2. ATASOL (PARACETAMOL) [Concomitant]
  3. ORENCIA [Concomitant]
     Active Substance: ABATACEPT
  4. ESTRACE [Concomitant]
     Active Substance: ESTRADIOL
  5. ACTEMRA [Suspect]
     Active Substance: TOCILIZUMAB
     Indication: RHEUMATOID ARTHRITIS
     Route: 042
     Dates: start: 20130429
  6. NEXIUM [Concomitant]
     Active Substance: ESOMEPRAZOLE MAGNESIUM
  7. ACTEMRA [Suspect]
     Active Substance: TOCILIZUMAB
     Route: 042
     Dates: start: 20130627, end: 20130627
  8. HYDROMORPH CONTIN [Concomitant]
     Active Substance: HYDROMORPHONE
  9. CELEBREX [Concomitant]
     Active Substance: CELECOXIB

REACTIONS (6)
  - Infection [Recovering/Resolving]
  - Acne [Recovering/Resolving]
  - Pruritus [Recovering/Resolving]
  - Hypersensitivity [Unknown]
  - Drug ineffective [Unknown]
  - Arthralgia [Not Recovered/Not Resolved]

NARRATIVE: CASE EVENT DATE: 201307
